FAERS Safety Report 23641565 (Version 1)
Quarter: 2024Q1

REPORT INFORMATION
  Report Type: Other
  Country: ES (occurrence: ES)
  Receive Date: 20240318
  Receipt Date: 20240318
  Transmission Date: 20240410
  Serious: Yes (Hospitalization, Other)
  Sender: FDA-Public Use
  Company Number: ES-AEMPS-1485561

PATIENT
  Age: 74 Year
  Sex: Female

DRUGS (4)
  1. ENVARSUS XR [Suspect]
     Active Substance: TACROLIMUS
     Indication: Renal transplant
     Dosage: 7.75 MILLIGRAM, QD, MODIFIED-RELEASE TABLET (PDF)
     Route: 048
     Dates: start: 2017, end: 20240129
  2. ENVARSUS XR [Suspect]
     Active Substance: TACROLIMUS
     Dosage: 7.75 MILLIGRAM, QD, MODIFIED-RELEASE TABLET (PDF)
     Route: 048
     Dates: start: 20240131, end: 20240201
  3. ENVARSUS XR [Suspect]
     Active Substance: TACROLIMUS
     Dosage: 5.75 MILLIGRAM, QD, MODIFIED-RELEASE TABLET (PDF)
     Route: 048
     Dates: start: 20240202
  4. ERTAPENEM [Suspect]
     Active Substance: ERTAPENEM
     Indication: Bacterial infection
     Dosage: 1 GRAM, QD
     Route: 042
     Dates: start: 20240122, end: 20240130

REACTIONS (2)
  - Metabolic encephalopathy [Recovered/Resolved]
  - Confusional state [Recovered/Resolved]

NARRATIVE: CASE EVENT DATE: 20240127
